FAERS Safety Report 4532626-9 (Version None)
Quarter: 2004Q4

REPORT INFORMATION
  Report Type: 
  Country: None (occurrence: None)
  Receive Date: 20041220
  Receipt Date: 20041220
  Transmission Date: 20050328
  Serious: Yes (Life-Threatening, Disabling)
  Sender: FDA-Public Use
  Company Number: None

PATIENT
  Age: 60 Year
  Sex: Female
  Weight: 81.6475 kg

DRUGS (2)
  1. BEXTRA [Suspect]
     Indication: ARTHRITIS
     Dosage: 1-2 PER DAY DAILEY
  2. BEXTRA [Suspect]
     Indication: FIBROMYALGIA
     Dosage: 1-2 PER DAY DAILEY

REACTIONS (1)
  - ARTERIOSPASM CORONARY [None]
